FAERS Safety Report 6137971-1 (Version None)
Quarter: 2009Q1

REPORT INFORMATION
  Report Type: 
  Country: None (occurrence: None)
  Receive Date: 20090331
  Receipt Date: 20090319
  Transmission Date: 20090719
  Serious: Yes (Other)
  Sender: FDA-Public Use
  Company Number: US-PFIZER INC-2005138162

PATIENT
  Sex: Female
  Weight: 76.2 kg

DRUGS (6)
  1. XALATAN [Suspect]
     Indication: INTRAOCULAR PRESSURE INCREASED
     Dosage: 1 GTT, 1X/DAY
     Route: 047
     Dates: start: 20040520, end: 20040701
  2. BETOPTIC [Suspect]
     Indication: INTRAOCULAR PRESSURE INCREASED
     Route: 047
     Dates: start: 20040615
  3. ALPHAGAN [Suspect]
     Indication: INTRAOCULAR PRESSURE INCREASED
     Route: 047
     Dates: start: 20040615
  4. TRUSOPT [Suspect]
     Indication: INTRAOCULAR PRESSURE INCREASED
     Route: 047
     Dates: start: 20040621
  5. COSOPT [Suspect]
     Indication: ILL-DEFINED DISORDER
     Route: 047
  6. BETIMOL [Suspect]
     Indication: ILL-DEFINED DISORDER
     Route: 065

REACTIONS (11)
  - ABNORMAL DREAMS [None]
  - COUGH [None]
  - DEPRESSION [None]
  - DYSPNOEA [None]
  - EYE DISORDER [None]
  - GROWTH OF EYELASHES [None]
  - INTRAOCULAR PRESSURE INCREASED [None]
  - LOSS OF LIBIDO [None]
  - NASAL CONGESTION [None]
  - PAIN [None]
  - TINNITUS [None]
